FAERS Safety Report 7477181-9 (Version None)
Quarter: 2011Q2

REPORT INFORMATION
  Report Type: 
  Country: None (occurrence: None)
  Receive Date: 20110512
  Receipt Date: 20110225
  Transmission Date: 20111010
  Serious: No
  Sender: FDA-Public Use
  Company Number: US-NOVEN-11US001869

PATIENT
  Sex: Male

DRUGS (2)
  1. DAYTRANA [Suspect]
     Dosage: UNK
     Route: 062
     Dates: start: 20070101
  2. DAYTRANA [Suspect]
     Indication: ATTENTION DEFICIT/HYPERACTIVITY DISORDER
     Dosage: 20 MG, QD (9 HRS/DAY)
     Route: 062
     Dates: start: 20110201

REACTIONS (5)
  - APPLICATION SITE ERYTHEMA [None]
  - PSYCHOMOTOR HYPERACTIVITY [None]
  - ANGER [None]
  - PRODUCT QUALITY ISSUE [None]
  - DISTURBANCE IN ATTENTION [None]
